FAERS Safety Report 4887838-1 (Version None)
Quarter: 2006Q1

REPORT INFORMATION
  Report Type: 
  Country: None (occurrence: None)
  Receive Date: 20060123
  Receipt Date: 20050406
  Transmission Date: 20060701
  Serious: Yes (Hospitalization, Other)
  Sender: FDA-Public Use
  Company Number: US-MERCK-0504USA01011

PATIENT
  Age: 63 Year
  Sex: Male
  Weight: 75 kg

DRUGS (5)
  1. VIOXX [Suspect]
     Indication: BACK PAIN
     Route: 048
     Dates: start: 20010101, end: 20020801
  2. VIOXX [Suspect]
     Route: 048
     Dates: start: 20010101, end: 20020801
  3. VIOXX [Suspect]
     Route: 048
     Dates: start: 20020801, end: 20020906
  4. VIOXX [Suspect]
     Route: 048
     Dates: start: 20020801, end: 20020906
  5. SINEMET [Concomitant]
     Route: 048

REACTIONS (16)
  - ACUTE MYOCARDIAL INFARCTION [None]
  - ANOREXIA [None]
  - ATELECTASIS [None]
  - CHEST DISCOMFORT [None]
  - COLITIS ULCERATIVE [None]
  - CONSTIPATION [None]
  - CORONARY ARTERY DISEASE [None]
  - DEPRESSION [None]
  - DIARRHOEA [None]
  - HEADACHE [None]
  - HYPOAESTHESIA [None]
  - HYPOKALAEMIA [None]
  - HYPOTENSION [None]
  - IRRITABLE BOWEL SYNDROME [None]
  - PANIC ATTACK [None]
  - WEIGHT DECREASED [None]
